FAERS Safety Report 8590423-1 (Version None)
Quarter: 2012Q3

REPORT INFORMATION
  Report Type: 
  Country: None (occurrence: None)
  Receive Date: 20120813
  Receipt Date: 20120803
  Transmission Date: 20120928
  Serious: Yes (Other)
  Sender: FDA-Public Use
  Company Number: PHHY2012IT067928

PATIENT
  Sex: Female

DRUGS (3)
  1. PROPAFENONE HCL [Suspect]
  2. ATENOLOL [Suspect]
  3. HYDROCHLOROTHIAZIDE [Suspect]

REACTIONS (3)
  - SYNCOPE [None]
  - ASTHENIA [None]
  - BRADYCARDIA [None]
